FAERS Safety Report 25053971 (Version 1)
Quarter: 2025Q1

REPORT INFORMATION
  Report Type: Spontaneous
  Country: US (occurrence: US)
  Receive Date: 20250307
  Receipt Date: 20250307
  Transmission Date: 20250409
  Serious: No
  Sender: SANOFI AVENTIS
  Company Number: US-SA-2025SA067129

PATIENT
  Sex: Female

DRUGS (9)
  1. DUPIXENT [Suspect]
     Active Substance: DUPILUMAB
     Indication: Asthma
     Dosage: 300 MG, QOW
     Route: 058
     Dates: start: 20191212
  2. AZASITE [Concomitant]
     Active Substance: AZITHROMYCIN MONOHYDRATE
  3. FLUTICASONE FUROATE\SALMETEROL XINAFOATE [Concomitant]
     Active Substance: FLUTICASONE FUROATE\SALMETEROL XINAFOATE
  4. LEVALBUTEROL [Concomitant]
     Active Substance: LEVALBUTEROL
  5. MELOXICAM [Concomitant]
     Active Substance: MELOXICAM
  6. PREDNISONE [Concomitant]
     Active Substance: PREDNISONE
  7. WIXELA INHUB [Concomitant]
     Active Substance: FLUTICASONE PROPIONATE\SALMETEROL XINAFOATE
  8. XIFAXAN [Concomitant]
     Active Substance: RIFAXIMIN
  9. XOPENEX HFA [Concomitant]
     Active Substance: LEVALBUTEROL TARTRATE

REACTIONS (3)
  - Impaired quality of life [Unknown]
  - Loss of personal independence in daily activities [Unknown]
  - Drug ineffective [Unknown]
